FAERS Safety Report 21975388 (Version 2)
Quarter: 2023Q1

REPORT INFORMATION
  Report Type: Spontaneous
  Country: AR (occurrence: AR)
  Receive Date: 20230210
  Receipt Date: 20230303
  Transmission Date: 20230418
  Serious: Yes (Other)
  Sender: FDA-Public Use
  Company Number: AR-BRISTOL-MYERS SQUIBB COMPANY-2023-019681

PATIENT
  Age: 48 Year
  Sex: Female

DRUGS (5)
  1. ABATACEPT [Suspect]
     Active Substance: ABATACEPT
     Indication: Rheumatoid arthritis
     Dates: start: 20201001
  2. URSODIOL [Concomitant]
     Active Substance: URSODIOL
  3. GEMFIBROZIL [Concomitant]
     Active Substance: GEMFIBROZIL
  4. LEVOTHYROXINE [Concomitant]
     Active Substance: LEVOTHYROXINE
  5. ISONIAZID [Concomitant]
     Active Substance: ISONIAZID
     Dosage: PATIENT TOOK 1 MONTH BEFORE AND 2 MONTHS AFTER STARTING ABATACEPT
     Dates: start: 202009

REACTIONS (1)
  - Cutaneous T-cell lymphoma [Recovering/Resolving]

NARRATIVE: CASE EVENT DATE: 20210101
